FAERS Safety Report 21596415 (Version 1)
Quarter: 2022Q4

REPORT INFORMATION
  Report Type: Spontaneous
  Country: US (occurrence: US)
  Receive Date: 20221115
  Receipt Date: 20221115
  Transmission Date: 20230113
  Serious: No
  Sender: FDA-Public Use
  Company Number: US-UNITED THERAPEUTICS-UNT-2022-027425

PATIENT
  Sex: Female

DRUGS (2)
  1. TYVASO DPI [Suspect]
     Active Substance: TREPROSTINIL
     Indication: Product used for unknown indication
     Dosage: UNK
     Dates: start: 20220908
  2. TYVASO [Suspect]
     Active Substance: TREPROSTINIL
     Indication: Product used for unknown indication
     Dosage: UNK
     Dates: start: 20211101, end: 202209

REACTIONS (2)
  - Cough [Unknown]
  - Dyspnoea [Unknown]

NARRATIVE: CASE EVENT DATE: 20220101
